FAERS Safety Report 6740753-0 (Version None)
Quarter: 2010Q2

REPORT INFORMATION
  Report Type: 
  Country: None (occurrence: None)
  Receive Date: 20100524
  Receipt Date: 20100517
  Transmission Date: 20101027
  Serious: Yes (Hospitalization)
  Sender: FDA-Public Use
  Company Number: 2009SP003081

PATIENT
  Age: 57 Year
  Sex: Female
  Weight: 140 kg

DRUGS (9)
  1. CICLESONIDE HFA [Suspect]
     Indication: RHINITIS PERENNIAL
     Dosage: 160 UG; QD;NASAL
     Route: 045
     Dates: start: 20091029, end: 20091112
  2. ATACAND /01349502/ (CON.) [Concomitant]
  3. FUROSEMIDE (CON.) [Concomitant]
  4. POTASSIUM (CON.) [Concomitant]
  5. LEVOXYL (CON.) [Concomitant]
  6. GLUCOSAMINE (CON.) [Concomitant]
  7. B12 (CON.) [Concomitant]
  8. FISH OIL (CON.) [Concomitant]
  9. ADVIL (CON.) [Concomitant]

REACTIONS (5)
  - ABSCESS [None]
  - DIVERTICULAR PERFORATION [None]
  - DIVERTICULITIS [None]
  - IMPAIRED HEALING [None]
  - SEROSITIS [None]
